FAERS Safety Report 10230868 (Version 1)
Quarter: 2014Q2

REPORT INFORMATION
  Report Type: Spontaneous
  Country: US (occurrence: US)
  Receive Date: 20140611
  Receipt Date: 20140611
  Transmission Date: 20141212
  Serious: No
  Sender: FDA-Public Use
  Company Number: US-B.I. PHARMACEUTICALS,INC./RIDGEFIELD-2014-BI-24834BP

PATIENT
  Age: 85 Year
  Sex: Female

DRUGS (6)
  1. SPIRIVA [Suspect]
     Indication: CHRONIC OBSTRUCTIVE PULMONARY DISEASE
     Dosage: 18 MCG
     Route: 055
     Dates: start: 2012
  2. SPIRIVA [Suspect]
     Dosage: 18 MCG
     Route: 048
     Dates: start: 20140601, end: 20140601
  3. COREG [Concomitant]
     Indication: CARDIAC DISORDER
     Route: 048
  4. SPIRINOLACTONE [Concomitant]
     Indication: CARDIAC DISORDER
     Route: 048
  5. ASPIRIN [Concomitant]
     Indication: CARDIAC DISORDER
     Dosage: 325 MG
     Route: 048
  6. DEXILANT [Concomitant]
     Indication: GASTROINTESTINAL DISORDER
     Route: 048

REACTIONS (2)
  - Dry mouth [Not Recovered/Not Resolved]
  - Incorrect route of drug administration [Recovered/Resolved]
